FAERS Safety Report 16895641 (Version 1)
Quarter: 2019Q4

REPORT INFORMATION
  Report Type: Spontaneous
  Country: US (occurrence: US)
  Receive Date: 20191008
  Receipt Date: 20191008
  Transmission Date: 20200122
  Serious: Yes (Other)
  Sender: FDA-Public Use
  Company Number: US-009507513-1910USA006420

PATIENT
  Age: 80 Year
  Sex: Male

DRUGS (1)
  1. KEYTRUDA [Suspect]
     Active Substance: PEMBROLIZUMAB
     Dosage: UNK
     Dates: end: 20190309

REACTIONS (3)
  - Myocarditis [Unknown]
  - Atrioventricular block complete [Unknown]
  - Malignant neoplasm progression [Unknown]
